FAERS Safety Report 6568359-7 (Version None)
Quarter: 2010Q1

REPORT INFORMATION
  Report Type: 
  Country: None (occurrence: None)
  Receive Date: 20100203
  Receipt Date: 20100121
  Transmission Date: 20100710
  Serious: Yes (Hospitalization)
  Sender: FDA-Public Use
  Company Number: JP-SANOFI-AVENTIS-2009SA005645

PATIENT
  Age: 78 Year
  Sex: Male

DRUGS (8)
  1. OXALIPLATIN [Suspect]
     Indication: COLON CANCER
     Route: 041
     Dates: start: 20081201, end: 20081201
  2. OXALIPLATIN [Suspect]
     Route: 041
     Dates: start: 20080301, end: 20080301
  3. CALCIUM LEVOFOLINATE [Suspect]
     Indication: COLON CANCER
     Route: 041
     Dates: start: 20081201, end: 20081201
  4. CALCIUM LEVOFOLINATE [Suspect]
     Route: 041
     Dates: start: 20080301, end: 20080301
  5. 5-FU [Suspect]
     Indication: COLON CANCER
     Route: 040
     Dates: start: 20081201, end: 20081201
  6. 5-FU [Suspect]
     Route: 041
     Dates: start: 20081201, end: 20081201
  7. 5-FU [Suspect]
     Route: 040
     Dates: start: 20080301, end: 20080301
  8. 5-FU [Suspect]
     Route: 041
     Dates: start: 20080301, end: 20080301

REACTIONS (1)
  - NECROTISING OESOPHAGITIS [None]
